FAERS Safety Report 19853420 (Version 1)
Quarter: 2021Q3

REPORT INFORMATION
  Report Type: Spontaneous
  Country: US (occurrence: US)
  Receive Date: 20210919
  Receipt Date: 20210919
  Transmission Date: 20211014
  Serious: No
  Sender: FDA-Public Use
  Company Number: US-SA-2021SA301537

PATIENT
  Sex: Female

DRUGS (1)
  1. DUPIXENT [Suspect]
     Active Substance: DUPILUMAB
     Indication: DERMATITIS ATOPIC
     Dosage: 300 MG, QOW
     Route: 058
     Dates: start: 202102

REACTIONS (6)
  - Lacrimation increased [Unknown]
  - Dermatitis [Unknown]
  - Hypersensitivity [Unknown]
  - Nasal congestion [Unknown]
  - Conjunctivitis [Unknown]
  - Eye pruritus [Unknown]
